FAERS Safety Report 22209041 (Version 1)
Quarter: 2023Q2

REPORT INFORMATION
  Report Type: Other
  Country: US (occurrence: US)
  Receive Date: 20230413
  Receipt Date: 20230413
  Transmission Date: 20230722
  Serious: Yes (Other)
  Sender: FDA-Public Use
  Company Number: US-TRAVERE-2023TVT00059

PATIENT
  Age: 21 Year
  Sex: Male

DRUGS (9)
  1. CHOLBAM [Suspect]
     Active Substance: CHOLIC ACID
     Indication: Refsum^s disease
     Route: 048
     Dates: start: 20211005
  2. CLONAZEPAM [Concomitant]
     Active Substance: CLONAZEPAM
  3. OLANZAPINE [Concomitant]
     Active Substance: OLANZAPINE
  4. CYPROHEPTADINE HYDROCHLORIDE [Concomitant]
     Active Substance: CYPROHEPTADINE HYDROCHLORIDE
  5. Vitamin K (Phytonadione) [Concomitant]
  6. Ferrous Sulfate ER [Concomitant]
  7. ZINC GLUCONATE [Concomitant]
     Active Substance: ZINC GLUCONATE
  8. Multivitamin Childrens (w/ FA) [Concomitant]
  9. LEVOCARNITINE [Concomitant]
     Active Substance: LEVOCARNITINE

REACTIONS (8)
  - Platelet count decreased [Unknown]
  - Back pain [Unknown]
  - Arthralgia [Unknown]
  - Abdominal pain [Unknown]
  - Neck pain [Unknown]
  - Feeding disorder [Unknown]
  - Colitis [Unknown]
  - Road traffic accident [Unknown]
